FAERS Safety Report 14076138 (Version 1)
Quarter: 2017Q4

REPORT INFORMATION
  Report Type: Report from Study
  Country: US (occurrence: US)
  Receive Date: 20171011
  Receipt Date: 20171011
  Transmission Date: 20180321
  Serious: Yes (Hospitalization)
  Sender: FDA-Public Use
  Company Number: US-UCBSA-2017039918

PATIENT
  Age: 34 Year
  Sex: Female
  Weight: 90.35 kg

DRUGS (21)
  1. LABETALOL [Concomitant]
     Active Substance: LABETALOL\LABETALOL HYDROCHLORIDE
     Indication: GESTATIONAL HYPERTENSION
     Dosage: 400 MG, ONCE DAILY (QD)
     Route: 048
     Dates: start: 20150612, end: 20150807
  2. SUDAFED [Concomitant]
     Active Substance: PSEUDOEPHEDRINE HYDROCHLORIDE
     Indication: VIRAL UPPER RESPIRATORY TRACT INFECTION
     Dosage: 4 DF, ONCE DAILY (QD)
     Route: 048
     Dates: start: 20150530, end: 20150601
  3. DIPHTHERIA AND TETANUS TOXOIDS AND PERTUSSIS VACCINE ADSORBED NOS [Concomitant]
     Active Substance: DIPHTHERIA AND TETANUS TOXOIDS AND PERTUSSIS VACCINE
     Indication: PRODUCT USED FOR UNKNOWN INDICATION
     Dosage: 1 DF, ONE TIME DOSE
     Dates: start: 20150629, end: 20150629
  4. METANX [Concomitant]
     Active Substance: LEVOMEFOLATE CALCIUM\METHYLCOBALAMIN\PYRIDOXAL PHOSPHATE ANHYDROUS
     Indication: PRODUCT USED FOR UNKNOWN INDICATION
     Dosage: 1 DF, ONCE DAILY (QD)
     Route: 048
     Dates: start: 20141121, end: 20150807
  5. VSL#3 [Concomitant]
     Active Substance: PROBIOTICS NOS
     Indication: PROBIOTIC THERAPY
     Dosage: UNK
     Route: 048
     Dates: start: 20141121, end: 20150807
  6. OMEGA 3 [Concomitant]
     Active Substance: OMEGA-3 FATTY ACIDS
     Indication: PRODUCT USED FOR UNKNOWN INDICATION
     Dosage: 1200 MG, ONCE DAILY (QD)
     Route: 048
     Dates: start: 20150212, end: 20150217
  7. VITAMIN C [Concomitant]
     Active Substance: ASCORBIC ACID
     Indication: PRODUCT USED FOR UNKNOWN INDICATION
     Dosage: 1000 IU, WEEKLY (QW)
     Route: 048
     Dates: start: 20141121, end: 20150317
  8. ZOFRAN [Concomitant]
     Active Substance: ONDANSETRON HYDROCHLORIDE
     Indication: NAUSEA
     Dosage: UNK
     Route: 048
     Dates: start: 20141121, end: 20150219
  9. ZOFRAN [Concomitant]
     Active Substance: ONDANSETRON HYDROCHLORIDE
     Indication: GASTROENTERITIS VIRAL
  10. CERTOLIZUMAB PEGOL RA [Suspect]
     Active Substance: CERTOLIZUMAB PEGOL
     Indication: CROHN^S DISEASE
     Dosage: 400 MG, MONTHLY (QM)
     Dates: start: 20130715, end: 20150807
  11. VALIUM [Concomitant]
     Active Substance: DIAZEPAM
     Indication: IN VITRO FERTILISATION
     Dosage: 1 DF, ONCE DAILY (QD)
     Route: 048
     Dates: start: 20141210, end: 20141210
  12. VITAMIN D [Concomitant]
     Active Substance: CHOLECALCIFEROL
     Indication: PRODUCT USED FOR UNKNOWN INDICATION
     Dosage: 5000 IU, WEEKLY (QW)
     Route: 048
     Dates: start: 20141121, end: 20150807
  13. ZYRTEC [Concomitant]
     Active Substance: CETIRIZINE HYDROCHLORIDE
     Indication: HYPERSENSITIVITY
     Dosage: 1 DF, ONCE DAILY (QD)
     Route: 048
     Dates: start: 20141121, end: 20150807
  14. BABY ASPIRIN [Concomitant]
     Active Substance: ASPIRIN
     Indication: IN VITRO FERTILISATION
     Dosage: 81 MG, ONCE DAILY (QD)
     Route: 048
     Dates: start: 20141121, end: 20150717
  15. ESTROGEN NOS [Concomitant]
     Active Substance: ESTROGENS
     Indication: IN VITRO FERTILISATION
     Dosage: 1 DF, 2X/WEEK
     Dates: start: 20141115, end: 20150205
  16. PENICILLIN NOS [Concomitant]
     Active Substance: PENICILLIN
     Indication: URINARY TRACT INFECTION
     Dosage: 4 DF, ONCE DAILY (QD)
     Route: 048
     Dates: start: 20150212, end: 20150217
  17. TYLENOL [Concomitant]
     Active Substance: ACETAMINOPHEN
     Indication: HEADACHE
     Dosage: 1000 MG, UNK
     Route: 048
     Dates: start: 20141121, end: 20150219
  18. PROGESTERONE IN OIL [Concomitant]
     Indication: IN VITRO FERTILISATION
     Dosage: 1 DF, ONCE DAILY (QD)
     Route: 048
     Dates: start: 20141205, end: 20150206
  19. TUMS [Concomitant]
     Active Substance: CALCIUM CARBONATE
     Indication: DYSPEPSIA
     Dosage: 1 DF, 2X/WEEK
     Route: 048
     Dates: start: 20150403, end: 20150807
  20. PRENAPLUS [Concomitant]
     Indication: PRODUCT USED FOR UNKNOWN INDICATION
     Dosage: 1 DF, ONCE DAILY (QD)
     Route: 048
     Dates: start: 20141121, end: 20150807
  21. ZITHROMAX [Concomitant]
     Active Substance: AZITHROMYCIN DIHYDRATE
     Indication: PRODUCT USED FOR UNKNOWN INDICATION
     Dosage: 1 DF, ONCE DAILY (QD)
     Route: 048
     Dates: start: 20141208, end: 20141210

REACTIONS (5)
  - Pregnancy [Unknown]
  - Urinary tract infection [Recovered/Resolved]
  - Gestational hypertension [Unknown]
  - Gastroenteritis viral [Recovered/Resolved]
  - Nasopharyngitis [Recovered/Resolved]

NARRATIVE: CASE EVENT DATE: 20141205
